FAERS Safety Report 23243964 (Version 1)
Quarter: 2023Q4

REPORT INFORMATION
  Report Type: Spontaneous
  Country: US (occurrence: US)
  Receive Date: 20231130
  Receipt Date: 20231130
  Transmission Date: 20240110
  Serious: Yes (Hospitalization)
  Sender: FDA-Public Use
  Company Number: US-AMGEN-USASP2023210163

PATIENT
  Sex: Male

DRUGS (1)
  1. CINACALCET HYDROCHLORIDE [Suspect]
     Active Substance: CINACALCET HYDROCHLORIDE
     Indication: Exposure during pregnancy
     Dosage: UNK
     Route: 064

REACTIONS (4)
  - Neonatal seizure [Unknown]
  - Neonatal hypocalcaemia [Unknown]
  - Foetal exposure during pregnancy [Unknown]
  - Small for dates baby [Unknown]
